FAERS Safety Report 14343645 (Version 1)
Quarter: 2018Q1

REPORT INFORMATION
  Report Type: Report from Study
  Country: SE (occurrence: SE)
  Receive Date: 20180102
  Receipt Date: 20180102
  Transmission Date: 20180509
  Serious: Yes (Hospitalization, Other)
  Sender: FDA-Public Use
  Company Number: SE-BAUSCH-BL-2017-035674

PATIENT
  Age: 35 Year
  Sex: Female

DRUGS (17)
  1. SOLU-MEDROL [Concomitant]
     Active Substance: METHYLPREDNISOLONE SODIUM SUCCINATE
     Indication: TRANSPLANT
     Dosage: 500 MG, UNKNOWN FREQ. (ONE DOSE) FORMULATION UNKNOWN
     Route: 042
  2. FOLIC ACID. [Concomitant]
     Active Substance: FOLIC ACID
     Indication: PRODUCT USED FOR UNKNOWN INDICATION
     Dosage: FORMULATION UNKNOWN
     Route: 048
  3. TACROLIMUS. [Suspect]
     Active Substance: TACROLIMUS
     Dosage: UNK UNK, TWICE DAILY (AIMING AT TROUGH LEVELS OF 5-10 NG/ML) (FORMULATION UNKNOWN)
     Route: 048
  4. TACROLIMUS. [Suspect]
     Active Substance: TACROLIMUS
     Dosage: 10 MG DAILY
     Route: 048
  5. PREDNISOLON [Suspect]
     Active Substance: PREDNISOLONE
     Indication: TRANSPLANT
     Dosage: FORMULATION UNKNOWN, FROM MONTH 6 POST-TRANSPLANTATION
     Route: 048
  6. IMUREL [Suspect]
     Active Substance: AZATHIOPRINE SODIUM
     Dosage: FORMULATION UNKNOWN
     Route: 065
  7. CELLCEPT [Concomitant]
     Active Substance: MYCOPHENOLATE MOFETIL\MYCOPHENOLATE MOFETIL HYDROCHLORIDE
     Indication: TRANSPLANT
     Dosage: 1 GRAM, FORMULATION UNKNOWN
     Route: 048
  8. LABETALOL [Suspect]
     Active Substance: LABETALOL\LABETALOL HYDROCHLORIDE
     Indication: BLOOD PRESSURE INCREASED
     Dosage: FORMULATION UNKNOWN
     Route: 048
  9. THYMOGLOBULIN [Concomitant]
     Active Substance: LAPINE T-LYMPHOCYTE IMMUNE GLOBULIN
     Indication: T-CELL DEPLETION
     Dosage: 12 HOURLY
     Route: 042
  10. CELLCEPT [Concomitant]
     Active Substance: MYCOPHENOLATE MOFETIL\MYCOPHENOLATE MOFETIL HYDROCHLORIDE
     Dosage: FORMULATION UNKNOWN. UNK UNK, TWICE DAILY
     Route: 048
  11. VALCYTE [Concomitant]
     Active Substance: VALGANCICLOVIR HYDROCHLORIDE
     Indication: ANTIVIRAL PROPHYLAXIS
     Dosage: FORMULATION UNKNOWN
     Route: 048
  12. ACETYLSALICYLIC ACID [Concomitant]
     Active Substance: ASPIRIN
     Indication: PRODUCT USED FOR UNKNOWN INDICATION
     Dosage: FORMULATION UNKNOWN
     Route: 065
  13. LUTINUS [Concomitant]
     Active Substance: PROGESTERONE
     Indication: PRODUCT USED FOR UNKNOWN INDICATION
     Dosage: FORMULATION UNKNOWN
     Route: 067
  14. TACROLIMUS. [Suspect]
     Active Substance: TACROLIMUS
     Indication: TRANSPLANT
     Route: 048
  15. TACROLIMUS. [Suspect]
     Active Substance: TACROLIMUS
     Dosage: FORMULATION UNKNOWN
     Route: 048
  16. IMUREL [Suspect]
     Active Substance: AZATHIOPRINE SODIUM
     Indication: TRANSPLANT
     Dosage: PER DAY?FORMULATION UNKNOWN
     Route: 065
  17. IMUREL [Suspect]
     Active Substance: AZATHIOPRINE SODIUM
     Dosage: PER DAY, FORMULATION UNKNOWN
     Route: 065

REACTIONS (11)
  - Transplant rejection [Recovered/Resolved]
  - Leukopenia [Unknown]
  - Anaemia [Recovering/Resolving]
  - Exposure during pregnancy [Unknown]
  - Product use in unapproved indication [Unknown]
  - Blood creatinine increased [Recovering/Resolving]
  - Pre-eclampsia [Recovered/Resolved]
  - Nonspecific reaction [Unknown]
  - Normal newborn [Unknown]
  - Premature delivery [Unknown]
  - Platelet count decreased [Unknown]
